FAERS Safety Report 4755660-2 (Version None)
Quarter: 2005Q3

REPORT INFORMATION
  Report Type: 
  Country: None (occurrence: None)
  Receive Date: 20050830
  Receipt Date: 20050617
  Transmission Date: 20060218
  Serious: No
  Sender: FDA-Public Use
  Company Number: US-BRISTOL-MYERS SQUIBB COMPANY-13008008

PATIENT
  Age: 6 Decade
  Sex: Male

DRUGS (4)
  1. ABILIFY [Suspect]
     Indication: PSYCHOTIC DISORDER
     Route: 048
  2. KLONOPIN [Concomitant]
  3. LUVOX [Concomitant]
  4. DEPAKOTE [Concomitant]

REACTIONS (1)
  - NIGHTMARE [None]
